FAERS Safety Report 7465903-2 (Version None)
Quarter: 2011Q2

REPORT INFORMATION
  Report Type: 
  Country: None (occurrence: None)
  Receive Date: 20110509
  Receipt Date: 20100427
  Transmission Date: 20111010
  Serious: No
  Sender: FDA-Public Use
  Company Number: US-ALEXION-A201000477

PATIENT
  Sex: Male

DRUGS (3)
  1. SOLIRIS [Suspect]
     Dosage: 900 MG, Q2W
     Route: 042
     Dates: start: 20070807
  2. SOLIRIS [Suspect]
     Indication: PAROXYSMAL NOCTURNAL HAEMOGLOBINURIA
     Dosage: 600 MG, QW
     Route: 042
     Dates: start: 20070710, end: 20070731
  3. ARIXTRA [Concomitant]
     Dosage: 7.5 MG, QD
     Route: 048

REACTIONS (3)
  - SINUS CONGESTION [None]
  - RHINORRHOEA [None]
  - NASOPHARYNGITIS [None]
